FAERS Safety Report 11719269 (Version 1)
Quarter: 2015Q4

REPORT INFORMATION
  Report Type: Spontaneous
  Country: US (occurrence: None)
  Receive Date: 20151109
  Receipt Date: 20151109
  Transmission Date: 20160304
  Serious: Yes (Life-Threatening, Hospitalization)
  Sender: FDA-Public Use
  Company Number: None

PATIENT
  Age: 79 Year
  Sex: Male
  Weight: 77.11 kg

DRUGS (8)
  1. PACEMAKER [Concomitant]
  2. WATER PILL [Concomitant]
     Active Substance: UNSPECIFIED INGREDIENT
  3. TOPROL XL [Concomitant]
     Active Substance: METOPROLOL SUCCINATE
  4. DIOVAN [Concomitant]
     Active Substance: VALSARTAN
  5. BABY ASPIRIN [Concomitant]
     Active Substance: ASPIRIN
  6. LUPRON [Suspect]
     Active Substance: LEUPROLIDE ACETATE
     Indication: PROSTATE CANCER
     Dosage: 3 MONTH INJECTIONS
  7. NOVOLOG [Concomitant]
     Active Substance: INSULIN ASPART
  8. METFORMIN [Concomitant]
     Active Substance: METFORMIN HYDROCHLORIDE

REACTIONS (4)
  - Pneumonia [None]
  - Cardiac failure congestive [None]
  - Unevaluable event [None]
  - Pulmonary haemorrhage [None]

NARRATIVE: CASE EVENT DATE: 20151028
